FAERS Safety Report 18631450 (Version 1)
Quarter: 2020Q4

REPORT INFORMATION
  Report Type: Spontaneous
  Country: FR (occurrence: FR)
  Receive Date: 20201218
  Receipt Date: 20201218
  Transmission Date: 20210114
  Serious: Yes (Hospitalization, Other)
  Sender: FDA-Public Use
  Company Number: FR-AUROBINDO-AUR-APL-2020-061452

PATIENT
  Age: 61 Year
  Sex: Female
  Weight: 107 kg

DRUGS (3)
  1. ACTISKENAN [Suspect]
     Active Substance: MORPHINE SULFATE
     Indication: SCIATICA
     Dosage: 20 MILLIGRAM, FOUR TIMES/DAY
     Route: 048
     Dates: start: 20201120, end: 20201121
  2. SKENAN [Suspect]
     Active Substance: MORPHINE SULFATE
     Indication: SCIATICA
     Dosage: 2 DOSAGE FORM, ONCE A DAY
     Route: 048
     Dates: start: 20201120, end: 20201121
  3. TRAMADOL. [Suspect]
     Active Substance: TRAMADOL
     Indication: PRODUCT USED FOR UNKNOWN INDICATION
     Dosage: UNK
     Route: 048

REACTIONS (2)
  - Oxygen saturation decreased [Recovered/Resolved]
  - Coma [Recovered/Resolved]

NARRATIVE: CASE EVENT DATE: 20201121
